FAERS Safety Report 6934678-5 (Version None)
Quarter: 2010Q3

REPORT INFORMATION
  Report Type: 
  Country: None (occurrence: None)
  Receive Date: 20100820
  Receipt Date: 20100722
  Transmission Date: 20110219
  Serious: Yes (Other)
  Sender: FDA-Public Use
  Company Number: PHEH2007US06794

PATIENT
  Sex: Female
  Weight: 92.971 kg

DRUGS (43)
  1. ZOMETA [Suspect]
     Indication: METASTASES TO BONE
     Dosage: 4 MG, UNK
     Dates: start: 20020304, end: 20040901
  2. AREDIA [Suspect]
     Dosage: 90 MG, UNK
     Dates: end: 20010221
  3. FEMARA [Concomitant]
  4. PENICILLIN VK [Concomitant]
     Dosage: 500 MG, UNK
  5. CALCIUM [Concomitant]
  6. ZOLADEX [Concomitant]
  7. CYTOXAN [Concomitant]
  8. ADRIAMYCIN PFS [Concomitant]
  9. RADIATION THERAPY [Concomitant]
  10. LUPRON [Concomitant]
     Dosage: UNK
     Dates: start: 20050101
  11. LIPITOR [Concomitant]
     Dosage: UNK
  12. TAXOTERE [Concomitant]
     Dosage: UNK
  13. PAXIL [Concomitant]
     Dosage: UNK
  14. HYDROGEN PEROXIDE MOUTH RINSE [Concomitant]
     Dosage: UNK
  15. CEFUROXIME AXETIL [Concomitant]
     Dosage: 500 MG 1 TABLET 2 TIMES DAILY
  16. METHOCARBAMOL [Concomitant]
     Dosage: 750 MG FOR MUSCLE SPASMS
  17. PROCHLORPERAZINE [Concomitant]
     Dosage: 10 MG FOR NAUSEA
  18. SERTRALINE HYDROCHLORIDE [Concomitant]
     Dosage: 100 MG, 1 TABLET DAILY
  19. PRILOSEC [Concomitant]
     Dosage: 20 MG 1 TABLET, 2 TIMES DAILY
  20. FEXOFENADINE HCL [Concomitant]
     Dosage: 180 MG 1 TABLET DAILY
  21. TAXOL [Concomitant]
     Dosage: UNK
  22. ETHYOL [Concomitant]
  23. ANZEMET [Concomitant]
     Dosage: UNK
  24. DEXAMETHASONE [Concomitant]
  25. MAGACE [Concomitant]
     Dosage: UNK
  26. PEPCID [Concomitant]
  27. CLINDAMYCIN [Concomitant]
     Dosage: UNK
     Route: 048
  28. ZOLOFT [Concomitant]
     Dosage: UNK
     Route: 048
  29. ROBAXIN [Concomitant]
     Dosage: UNK
     Route: 048
  30. LORTAB [Concomitant]
     Dosage: UNK
     Route: 048
  31. ASPIRIN [Concomitant]
  32. MULTIVITAMIN ^LAPPE^ [Concomitant]
  33. FISH OIL [Concomitant]
  34. MAGNESIUM [Concomitant]
  35. TURMERIC [Concomitant]
  36. VITAMIN D [Concomitant]
  37. FOLATE SODIUM [Concomitant]
  38. ALPHA LIPOIC ACID [Concomitant]
  39. OXYCODONE [Concomitant]
  40. AMOXICILLIN [Concomitant]
  41. TRAZODONE HCL [Concomitant]
  42. SIMVASTATIN [Concomitant]
  43. HYDROCODONE BITARTRATE AND ACETAMINOPHEN [Concomitant]

REACTIONS (50)
  - ABDOMINAL HERNIA [None]
  - ADNEXA UTERI CYST [None]
  - ANAEMIA [None]
  - ANXIETY [None]
  - ATELECTASIS [None]
  - BACK PAIN [None]
  - CALCULUS URETERIC [None]
  - CATARACT [None]
  - CENTRAL VENOUS CATHETER REMOVAL [None]
  - CENTRAL VENOUS CATHETERISATION [None]
  - CERVICAL DYSPLASIA [None]
  - COMPRESSION FRACTURE [None]
  - DEPRESSION [None]
  - DIVERTICULUM [None]
  - DRY EYE [None]
  - ENDOTRACHEAL INTUBATION [None]
  - GENERAL PHYSICAL HEALTH DETERIORATION [None]
  - HEPATIC LESION [None]
  - HERNIA REPAIR [None]
  - HIATUS HERNIA [None]
  - HYDRONEPHROSIS [None]
  - HYDROURETER [None]
  - INJURY [None]
  - INTERVERTEBRAL DISC DEGENERATION [None]
  - INTERVERTEBRAL DISC PROTRUSION [None]
  - IRON DEFICIENCY ANAEMIA [None]
  - JOINT INJURY [None]
  - LUNG NEOPLASM [None]
  - METASTASES TO LIVER [None]
  - METASTASES TO SPINE [None]
  - MYOPIA [None]
  - NEPHROLITHIASIS [None]
  - NOCTURIA [None]
  - OOPHORECTOMY BILATERAL [None]
  - ORAL DISORDER [None]
  - OSTEONECROSIS OF JAW [None]
  - OSTEOSARCOMA METASTATIC [None]
  - PAIN [None]
  - PERICARDIAL EFFUSION [None]
  - PLEURAL EFFUSION [None]
  - RETINAL MELANOMA [None]
  - RETINAL PIGMENT EPITHELIOPATHY [None]
  - RIB FRACTURE [None]
  - SKIN LESION EXCISION [None]
  - SPONDYLOLISTHESIS [None]
  - SURGERY [None]
  - TENDON INJURY [None]
  - THYROID CYST [None]
  - TOOTH LOSS [None]
  - VERTEBROPLASTY [None]
